FAERS Safety Report 5045362-X (Version None)
Quarter: 2006Q3

REPORT INFORMATION
  Report Type: 
  Country: None (occurrence: None)
  Receive Date: 20060707
  Receipt Date: 20060327
  Transmission Date: 20061208
  Serious: No
  Sender: FDA-Public Use
  Company Number: US-GLAXOSMITHKLINE-A0599173A

PATIENT
  Age: 62 Year
  Sex: Female
  Weight: 52.7 kg

DRUGS (8)
  1. LOTRONEX [Suspect]
     Indication: IRRITABLE BOWEL SYNDROME
     Dosage: 1MG SEE DOSAGE TEXT
     Route: 048
  2. SYNTHROID [Concomitant]
  3. LAMICTAL [Concomitant]
  4. SEROQUEL [Concomitant]
  5. LORAZEPAM [Concomitant]
  6. LOTENSIN [Concomitant]
  7. SOMA [Concomitant]
  8. VICODIN [Concomitant]

REACTIONS (2)
  - DIARRHOEA [None]
  - DRUG INEFFECTIVE [None]
